FAERS Safety Report 8422492-3 (Version None)
Quarter: 2012Q2

REPORT INFORMATION
  Report Type: 
  Country: None (occurrence: None)
  Receive Date: 20120608
  Receipt Date: 20120525
  Transmission Date: 20120825
  Serious: Yes (Hospitalization, Other)
  Sender: FDA-Public Use
  Company Number: NL-WATSON-2012-08027

PATIENT
  Age: 55 Year
  Sex: Female

DRUGS (1)
  1. PREDNISONE TAB [Suspect]
     Indication: FACIAL PARESIS
     Dosage: UNK
     Route: 065

REACTIONS (2)
  - HEPATIC FAILURE [None]
  - HEPATITIS B [None]
